FAERS Safety Report 8206002-1 (Version None)
Quarter: 2012Q1

REPORT INFORMATION
  Report Type: 
  Country: None (occurrence: None)
  Receive Date: 20120313
  Receipt Date: 20120229
  Transmission Date: 20120608
  Serious: Yes (Other)
  Sender: FDA-Public Use
  Company Number: DE-FRI-1000024361

PATIENT
  Age: 76 Year
  Sex: Female
  Weight: 102 kg

DRUGS (15)
  1. ALBUTEROL [Concomitant]
     Indication: CHRONIC OBSTRUCTIVE PULMONARY DISEASE
     Route: 055
     Dates: start: 20060101, end: 20110905
  2. RISEDRONATE SODIUM [Concomitant]
     Indication: OSTEOPOROSIS
     Dates: start: 20060101
  3. FUROSEMIDE [Concomitant]
     Indication: CARDIAC FAILURE
     Dates: start: 20060101
  4. RAMIPRIL [Concomitant]
     Indication: HYPERTENSION
     Dates: start: 20060101
  5. PANTOPRAZOLE [Concomitant]
     Indication: PROPHYLAXIS
     Dates: start: 20060101
  6. TRAMADOL HCL [Concomitant]
     Indication: PAIN
     Dates: start: 20060101
  7. ROFLUMILAST [Suspect]
     Indication: CHRONIC OBSTRUCTIVE PULMONARY DISEASE
     Dosage: 1  DOSAGE FORM
     Route: 048
     Dates: start: 20110729, end: 20110901
  8. SPIRIVA [Concomitant]
     Indication: ASTHMA
  9. THEOPHYLLINE [Concomitant]
     Indication: ASTHMA
  10. THEOPHYLLINE [Concomitant]
     Indication: CHRONIC OBSTRUCTIVE PULMONARY DISEASE
     Dates: start: 20060101
  11. SPIRIVA [Concomitant]
     Indication: CHRONIC OBSTRUCTIVE PULMONARY DISEASE
     Dates: start: 20060101
  12. SYMBICORT [Concomitant]
     Indication: CHRONIC OBSTRUCTIVE PULMONARY DISEASE
     Dates: start: 20060101
  13. SYMBICORT [Concomitant]
     Indication: ASTHMA
  14. ALBUTEROL [Concomitant]
     Indication: ASTHMA
  15. SPIRONOLACTONE [Concomitant]
     Indication: CARDIAC FAILURE
     Dates: start: 20060101

REACTIONS (1)
  - GASTROINTESTINAL HAEMORRHAGE [None]
